FAERS Safety Report 6106763-1 (Version None)
Quarter: 2009Q1

REPORT INFORMATION
  Report Type: 
  Country: None (occurrence: None)
  Receive Date: 20090307
  Receipt Date: 20090224
  Transmission Date: 20090719
  Serious: Yes (Other)
  Sender: FDA-Public Use
  Company Number: US-JNJCH-2009005194

PATIENT
  Age: 58 Year
  Sex: Female
  Weight: 61.2 kg

DRUGS (1)
  1. LUBRIDERM INTENSE REPAIR BODY LOTION [Suspect]
     Indication: DRUG USE FOR UNKNOWN INDICATION
     Dosage: TEXT:UNSPECIFIED, ONCE DAILY
     Route: 061
     Dates: start: 20090126, end: 20090218

REACTIONS (3)
  - APPLICATION SITE ERYTHEMA [None]
  - APPLICATION SITE INFLAMMATION [None]
  - ARTHRALGIA [None]
